FAERS Safety Report 8426892-7 (Version None)
Quarter: 2012Q2

REPORT INFORMATION
  Report Type: 
  Country: None (occurrence: None)
  Receive Date: 20120611
  Receipt Date: 20120606
  Transmission Date: 20120825
  Serious: Yes (Hospitalization, Other)
  Sender: FDA-Public Use
  Company Number: CA-ROCHE-1072424

PATIENT
  Sex: Female
  Weight: 54.48 kg

DRUGS (5)
  1. MABTHERA [Suspect]
     Indication: RHEUMATOID ARTHRITIS
     Route: 042
     Dates: start: 20110901, end: 20110919
  2. VITAMIN D [Concomitant]
  3. PLAQUENIL [Concomitant]
  4. PREVACID [Concomitant]
  5. AMERGE [Concomitant]
     Indication: MIGRAINE

REACTIONS (2)
  - PULMONARY EMBOLISM [None]
  - INTESTINAL OPERATION [None]
